FAERS Safety Report 4306481-6 (Version None)
Quarter: 2004Q1

REPORT INFORMATION
  Report Type: 
  Country: None (occurrence: None)
  Receive Date: 20040225
  Receipt Date: 20030818
  Transmission Date: 20041129
  Serious: No
  Sender: FDA-Public Use
  Company Number: US-BRISTOL-MYERS SQUIBB COMPANY-12358099

PATIENT
  Age: 65 Year
  Sex: Female
  Weight: 70 kg

DRUGS (1)
  1. EXCEDRIN TABS [Suspect]
     Indication: SINUS DISORDER
     Route: 048
     Dates: start: 20030816

REACTIONS (5)
  - ERYTHEMA [None]
  - OEDEMA PERIPHERAL [None]
  - PRURITUS [None]
  - SWELLING [None]
  - URTICARIA [None]
